FAERS Safety Report 9174364 (Version 1)
Quarter: 2013Q1

REPORT INFORMATION
  Report Type: Report from Study
  Country: RU (occurrence: RU)
  Receive Date: 20130320
  Receipt Date: 20130320
  Transmission Date: 20140127
  Serious: Yes (Hospitalization)
  Sender: FDA-Public Use
  Company Number: RU-EISAI INC-E2007-00882-CLI-RU

PATIENT
  Age: 16 Year
  Sex: Male
  Weight: 100.1 kg

DRUGS (4)
  1. E2007 (PERAMPANEL) [Suspect]
     Indication: PARTIAL SEIZURES
     Dosage: DOUBLE BLIND-CONVERSION PERIOD
     Route: 048
     Dates: start: 20091008, end: 2010
  2. E2007 (PERAMPANEL) [Suspect]
     Route: 048
     Dates: start: 2010, end: 20120221
  3. VALPROIC ACID [Concomitant]
     Indication: EPILEPSY
     Route: 048
     Dates: start: 200702
  4. TOPIRAMATE [Concomitant]
     Indication: EPILEPSY
     Route: 048
     Dates: start: 200703

REACTIONS (2)
  - Status epilepticus [Recovered/Resolved]
  - Aggression [Recovered/Resolved]
